FAERS Safety Report 13064790 (Version 1)
Quarter: 2016Q4

REPORT INFORMATION
  Report Type: Spontaneous
  Country: US (occurrence: US)
  Receive Date: 20161223
  Receipt Date: 20161223
  Transmission Date: 20170207
  Serious: Yes (Other)
  Sender: FDA-Public Use
  Company Number: None

PATIENT
  Age: 57 Year
  Sex: Female

DRUGS (1)
  1. FORTEO [Suspect]
     Active Substance: TERIPARATIDE
     Indication: OSTEOPOROSIS
     Dosage: 20MCG (0.08ML) DAILY SUBCUTANEOUSLY
     Route: 058
     Dates: start: 20161201

REACTIONS (6)
  - Wrong technique in product usage process [None]
  - Musculoskeletal stiffness [None]
  - Pain in extremity [None]
  - Nausea [None]
  - Injection site reaction [None]
  - Injection site erythema [None]

NARRATIVE: CASE EVENT DATE: 20161205
